FAERS Safety Report 24229548 (Version 1)
Quarter: 2024Q3

REPORT INFORMATION
  Report Type: Spontaneous
  Country: CN (occurrence: CN)
  Receive Date: 20240820
  Receipt Date: 20240820
  Transmission Date: 20241016
  Serious: Yes (Hospitalization)
  Sender: GLAXOSMITHKLINE
  Company Number: CN-GLAXOSMITHKLINE-CN2024APC100933

PATIENT

DRUGS (7)
  1. DOLUTEGRAVIR SODIUM\LAMIVUDINE [Suspect]
     Active Substance: DOLUTEGRAVIR SODIUM\LAMIVUDINE
     Indication: Acquired immunodeficiency syndrome
     Dosage: 1 DF, QD
     Route: 048
     Dates: start: 20240701, end: 20240705
  2. LAMIVUDINE [Suspect]
     Active Substance: LAMIVUDINE
     Indication: Acquired immunodeficiency syndrome
     Dosage: UNK
  3. ABACAVIR [Suspect]
     Active Substance: ABACAVIR
     Indication: Acquired immunodeficiency syndrome
     Dosage: UNK
  4. EFAVIRENZ [Suspect]
     Active Substance: EFAVIRENZ
     Indication: Acquired immunodeficiency syndrome
     Dosage: UNK
  5. TENOFOVIR [Suspect]
     Active Substance: TENOFOVIR
     Indication: Acquired immunodeficiency syndrome
     Dosage: UNK
  6. CALCIUM [Concomitant]
     Active Substance: CALCIUM
     Indication: Product used for unknown indication
     Dosage: UNK
  7. VITAMIN D3 [Concomitant]
     Active Substance: CHOLECALCIFEROL
     Indication: Product used for unknown indication
     Dosage: UNK

REACTIONS (7)
  - Petechiae [Recovered/Resolved]
  - Pruritus [Unknown]
  - Condition aggravated [Unknown]
  - Drug hypersensitivity [Unknown]
  - Osteoporosis [Unknown]
  - Rash pruritic [Recovered/Resolved]
  - Rash erythematous [Recovered/Resolved]

NARRATIVE: CASE EVENT DATE: 20240517
